FAERS Safety Report 8080440-2 (Version None)
Quarter: 2012Q1

REPORT INFORMATION
  Report Type: 
  Country: None (occurrence: None)
  Receive Date: 20120130
  Receipt Date: 20120124
  Transmission Date: 20120608
  Serious: Yes (Death, Hospitalization, Other)
  Sender: FDA-Public Use
  Company Number: IL-PFIZER INC-2012014876

PATIENT
  Age: 73 Year
  Sex: Male

DRUGS (3)
  1. AFINITOR [Suspect]
     Indication: RENAL CELL CARCINOMA
     Dosage: 10 MG, 1X/DAY
     Dates: start: 20110922
  2. SUTENT [Suspect]
     Indication: RENAL CELL CARCINOMA
     Dosage: UNK
     Dates: start: 20090716, end: 20110310
  3. SORAFENIB [Suspect]
     Indication: RENAL CELL CARCINOMA
     Dosage: UNK
     Dates: start: 20110314

REACTIONS (9)
  - RENAL FAILURE [None]
  - DYSPNOEA [None]
  - CYANOSIS [None]
  - CARDIAC FAILURE CONGESTIVE [None]
  - PYREXIA [None]
  - INFECTION [None]
  - GENERAL PHYSICAL HEALTH DETERIORATION [None]
  - ASPIRATION [None]
  - CYANOSIS CENTRAL [None]
